FAERS Safety Report 6293373-9 (Version None)
Quarter: 2009Q3

REPORT INFORMATION
  Report Type: 
  Country: None (occurrence: None)
  Receive Date: 20090731
  Receipt Date: 20090722
  Transmission Date: 20100115
  Serious: Yes (Other)
  Sender: FDA-Public Use
  Company Number: CA-MERCK-0505CAN00196

PATIENT
  Age: 17 Year
  Sex: Female
  Weight: 55 kg

DRUGS (2)
  1. SINGULAIR [Suspect]
     Route: 048
  2. SINGULAIR [Suspect]
     Route: 048
     Dates: start: 20050501, end: 20050501

REACTIONS (3)
  - INTENTIONAL OVERDOSE [None]
  - NO ADVERSE EVENT [None]
  - SUICIDE ATTEMPT [None]
